FAERS Safety Report 24369731 (Version 1)
Quarter: 2024Q3

REPORT INFORMATION
  Report Type: Report from Study
  Country: US (occurrence: US)
  Receive Date: 20240927
  Receipt Date: 20240927
  Transmission Date: 20241017
  Serious: No
  Sender: ROCHE
  Company Number: US-ROCHE-3512335

PATIENT
  Age: 66 Year
  Sex: Male

DRUGS (16)
  1. LUCENTIS [Suspect]
     Active Substance: RANIBIZUMAB
     Indication: Diabetic retinopathy
     Dosage: 0.3 MG/0.05 ML
     Route: 050
  2. LUCENTIS [Suspect]
     Active Substance: RANIBIZUMAB
     Indication: Macular oedema
  3. LUCENTIS [Suspect]
     Active Substance: RANIBIZUMAB
     Indication: Vitreous haemorrhage
  4. LUCENTIS [Suspect]
     Active Substance: RANIBIZUMAB
     Indication: Retinal ischaemia
  5. LUCENTIS [Suspect]
     Active Substance: RANIBIZUMAB
     Indication: Retinal drusen
  6. LUCENTIS [Suspect]
     Active Substance: RANIBIZUMAB
     Indication: Vitreous degeneration
  7. LUCENTIS [Suspect]
     Active Substance: RANIBIZUMAB
     Indication: Borderline glaucoma
  8. LATANOPROST [Concomitant]
     Active Substance: LATANOPROST
  9. PNEUMOCOCCAL VACCINE POLYVALENT NOS [Concomitant]
     Active Substance: PNEUMOCOCCAL VACCINE, POLYVALENT
  10. LANTUS [Concomitant]
     Active Substance: INSULIN GLARGINE
     Dosage: 4 UNITS
  11. LASIX [Concomitant]
     Active Substance: FUROSEMIDE
  12. CITALOPRAM [Concomitant]
     Active Substance: CITALOPRAM
  13. LOSARTAN [Concomitant]
     Active Substance: LOSARTAN\LOSARTAN POTASSIUM
  14. CELEXA [Concomitant]
     Active Substance: CITALOPRAM HYDROBROMIDE
  15. FARXIGA [Concomitant]
     Active Substance: DAPAGLIFLOZIN PROPANEDIOL
  16. METOPROLOL [Concomitant]
     Active Substance: METOPROLOL

REACTIONS (6)
  - Vision blurred [Unknown]
  - Cough [Unknown]
  - Wheezing [Unknown]
  - Arthralgia [Unknown]
  - Dizziness [Unknown]
  - Vitreous floaters [Unknown]
